FAERS Safety Report 6023411-X (Version None)
Quarter: 2008Q4

REPORT INFORMATION
  Report Type: 
  Country: None (occurrence: None)
  Receive Date: 20081223
  Receipt Date: 20081208
  Transmission Date: 20090506
  Serious: Yes (Hospitalization, Other)
  Sender: FDA-Public Use
  Company Number: 1000001647

PATIENT
  Age: 78 Year
  Sex: Female

DRUGS (4)
  1. ESCITALOPRAM OXALATE [Suspect]
     Dosage: 260 MG (260 MG, ONCE), ORAL
     Route: 048
     Dates: start: 20081102, end: 20081102
  2. CLINDAHEXAL (300 MILLIGRAM, TABLETS) [Suspect]
     Dosage: 2100 MG (2100 MG, ONCE), ORAL
     Route: 048
     Dates: start: 20081102, end: 20081102
  3. DOMINAL FORTE [Suspect]
     Dosage: 40 (40 ONCE) , ORAL
     Route: 048
     Dates: start: 20081102, end: 20081102
  4. STILNOX (10 MILLIGRAM, TABLETS) [Suspect]
     Dosage: 90 MG (90 MG, ONCE), ORAL
     Route: 048
     Dates: start: 20081102, end: 20081102

REACTIONS (3)
  - INTENTIONAL OVERDOSE [None]
  - SOPOR [None]
  - SUICIDE ATTEMPT [None]
